FAERS Safety Report 11459119 (Version 1)
Quarter: 2015Q3

REPORT INFORMATION
  Report Type: Spontaneous
  Country: US (occurrence: US)
  Receive Date: 20150904
  Receipt Date: 20150904
  Transmission Date: 20151125
  Serious: No
  Sender: FDA-Public Use
  Company Number: US-PFIZER INC-2015291597

PATIENT
  Age: 44 Year
  Sex: Female
  Weight: 52 kg

DRUGS (2)
  1. ADVIL [Suspect]
     Active Substance: IBUPROFEN
     Indication: HEADACHE
     Dosage: 200 MG, UNK
     Dates: start: 201508, end: 201508
  2. HUMIRA [Concomitant]
     Active Substance: ADALIMUMAB
     Indication: ARTHRITIS
     Dosage: UNKNOWN DOSAGE, EVERY 2 WEEKS AN INJECTION

REACTIONS (1)
  - Drug ineffective [Not Recovered/Not Resolved]

NARRATIVE: CASE EVENT DATE: 201508
